FAERS Safety Report 4957348-1 (Version None)
Quarter: 2006Q1

REPORT INFORMATION
  Report Type: 
  Country: None (occurrence: None)
  Receive Date: 20060327
  Receipt Date: 20060313
  Transmission Date: 20060701
  Serious: Yes (Hospitalization)
  Sender: FDA-Public Use
  Company Number: 163-C5013-06030521

PATIENT
  Age: 56 Year
  Sex: Female
  Weight: 63.5036 kg

DRUGS (2)
  1. REVLIMID [Suspect]
     Indication: MULTIPLE MYELOMA
     Dosage: 25 MG, QD FOR 21D, ORAL
     Route: 048
     Dates: start: 20060127
  2. DEXAMETHASONE [Suspect]
     Indication: MULTIPLE MYELOMA
     Dosage: 40 MG, QD FOR 4D, ORAL
     Route: 048
     Dates: start: 20060127

REACTIONS (7)
  - ANAEMIA [None]
  - ATRIAL FIBRILLATION [None]
  - DEHYDRATION [None]
  - HALLUCINATION [None]
  - HYPOKALAEMIA [None]
  - LUNG CONSOLIDATION [None]
  - PANCYTOPENIA [None]
